FAERS Safety Report 6619204-2 (Version None)
Quarter: 2010Q1

REPORT INFORMATION
  Report Type: 
  Country: None (occurrence: None)
  Receive Date: 20100302
  Receipt Date: 20100208
  Transmission Date: 20100710
  Serious: Yes (Hospitalization, Other)
  Sender: FDA-Public Use
  Company Number: AUR-APL-2009-00689

PATIENT
  Age: 13 Year
  Sex: Male

DRUGS (2)
  1. AMOXICILLIN [Suspect]
     Indication: PHARYNGITIS STREPTOCOCCAL
     Dosage: 500MG ORAL
     Route: 048
     Dates: start: 20070917
  2. DILANTIN [Suspect]
     Indication: CONVULSION
     Dosage: QHS ORAL
     Route: 048
     Dates: start: 20070902

REACTIONS (39)
  - ALOPECIA [None]
  - CERUMEN IMPACTION [None]
  - CORNEAL ABRASION [None]
  - CORNEAL NEOVASCULARISATION [None]
  - DIARRHOEA [None]
  - DIPLOPIA [None]
  - EAR PAIN [None]
  - ECCHYMOSIS [None]
  - EXCORIATION [None]
  - EYE IRRITATION [None]
  - GINGIVAL BLEEDING [None]
  - HAEMATOMA [None]
  - HYPOACUSIS [None]
  - INJURY [None]
  - KERATOPATHY [None]
  - LACRIMATION INCREASED [None]
  - LIP HAEMORRHAGE [None]
  - LIP SWELLING [None]
  - NASAL DISCOMFORT [None]
  - OCULAR HYPERAEMIA [None]
  - PAIN IN EXTREMITY [None]
  - PENILE HAEMORRHAGE [None]
  - PHARYNGITIS STREPTOCOCCAL [None]
  - PHOTOPHOBIA [None]
  - PLATELET COUNT DECREASED [None]
  - PRURITUS [None]
  - RASH GENERALISED [None]
  - RESPIRATORY DISTRESS [None]
  - RESPIRATORY FAILURE [None]
  - SKIN EXFOLIATION [None]
  - SKIN HAEMORRHAGE [None]
  - SKIN HYPERPIGMENTATION [None]
  - STEM CELL TRANSPLANT [None]
  - STEVENS-JOHNSON SYNDROME [None]
  - STOMATITIS [None]
  - SYMBLEPHARON [None]
  - TOXIC EPIDERMAL NECROLYSIS [None]
  - VOMITING [None]
  - WHITE BLOOD CELL COUNT DECREASED [None]
